FAERS Safety Report 17268988 (Version 1)
Quarter: 2020Q1

REPORT INFORMATION
  Report Type: Spontaneous
  Country: AU (occurrence: AU)
  Receive Date: 20200114
  Receipt Date: 20200114
  Transmission Date: 20200409
  Serious: Yes (Hospitalization)
  Sender: FDA-Public Use
  Company Number: AU-BAXTER-2020BAX000460

PATIENT
  Age: 70 Year
  Sex: Male
  Weight: 89.9 kg

DRUGS (11)
  1. BUPRENORPHINE. [Concomitant]
     Active Substance: BUPRENORPHINE
     Indication: PAIN
     Dosage: TAKE 1-2 TABLETS UNDER THE TONGUE WHEN REQUIRED FOR SEVERE PAIN
     Route: 060
  2. BUPRENORPHINE. [Concomitant]
     Active Substance: BUPRENORPHINE
     Dosage: WITHHELD DUE TO SKIN RASH, TALK TO DOCTOR BEFORE RESTARTING
     Route: 065
  3. FUROSEMIDE. [Concomitant]
     Active Substance: FUROSEMIDE
     Indication: CHRONIC KIDNEY DISEASE
     Dosage: 3 TABLETS IN THE MORNING AND 2 TABLETS AT MIDDAY
     Route: 048
  4. CALCIUM CARBONATE. [Concomitant]
     Active Substance: CALCIUM CARBONATE
     Indication: PRODUCT USED FOR UNKNOWN INDICATION
     Dosage: TAKE 1 TABLET IN THE MORNING, MIDDAY AND IN THE EVENING
     Route: 048
  5. CALCITRIOL. [Concomitant]
     Active Substance: CALCITRIOL
     Indication: PRODUCT USED FOR UNKNOWN INDICATION
     Dosage: DISCONTINUED, NO LONGER REQUIRED
     Route: 048
  6. EXTRANEAL [Suspect]
     Active Substance: CALCIUM CHLORIDE\ICODEXTRIN\MAGNESIUM CHLORIDE\SODIUM CHLORIDE\SODIUM LACTATE
     Indication: PERITONEAL DIALYSIS
     Dosage: EVERY NIGHT
     Route: 033
     Dates: start: 20191114, end: 20191209
  7. MAGNESIUM [Concomitant]
     Active Substance: MAGNESIUM
     Indication: PRODUCT USED FOR UNKNOWN INDICATION
     Dosage: TAKE ONE CAPSULE IN THE MORNING AND IN THE EVENING
     Route: 048
  8. EPOETIN ALFA [Concomitant]
     Active Substance: ERYTHROPOIETIN
     Indication: CHRONIC KIDNEY DISEASE
     Dosage: ADMINISTER THE CONTENT OF 1 SYRINGE BY SUBCUTANEOUS INJECTION IN THE MORNING, ONCE A WEEK
     Route: 058
  9. PRAZOSIN. [Concomitant]
     Active Substance: PRAZOSIN
     Indication: PRODUCT USED FOR UNKNOWN INDICATION
     Dosage: CEASED, NO LONGER REQUIRED
     Route: 048
  10. ASPIRIN. [Concomitant]
     Active Substance: ASPIRIN
     Indication: PROPHYLAXIS
     Dosage: ONE TABLET IN THE MORNING WITH FOOD
     Route: 048
  11. TESTOSTERONE UNDECANOATE. [Concomitant]
     Active Substance: TESTOSTERONE UNDECANOATE
     Indication: PRODUCT USED FOR UNKNOWN INDICATION
     Dosage: INJECT EVERY 3 MONTHLY.
     Route: 065

REACTIONS (7)
  - Peritonitis [Recovered/Resolved]
  - Fungal infection [Unknown]
  - Localised infection [Unknown]
  - Venous pressure jugular increased [Unknown]
  - Oedema peripheral [Unknown]
  - Scrotal swelling [Unknown]
  - Peritoneal disorder [Unknown]

NARRATIVE: CASE EVENT DATE: 20191212
